FAERS Safety Report 5722529-6 (Version None)
Quarter: 2008Q2

REPORT INFORMATION
  Report Type: 
  Country: None (occurrence: None)
  Receive Date: 20080425
  Receipt Date: 20080415
  Transmission Date: 20081010
  Serious: Yes (Hospitalization)
  Sender: FDA-Public Use
  Company Number: 8031742

PATIENT
  Sex: Female
  Weight: 72.1 kg

DRUGS (3)
  1. KEPPRA [Suspect]
     Indication: CONVULSION
  2. DILANTIN [Concomitant]
  3. ZONEGRAN [Concomitant]

REACTIONS (1)
  - DRUG INEFFECTIVE [None]
